FAERS Safety Report 12491843 (Version 1)
Quarter: 2016Q2

REPORT INFORMATION
  Report Type: Spontaneous
  Country: FR (occurrence: FR)
  Receive Date: 20160623
  Receipt Date: 20160623
  Transmission Date: 20160815
  Serious: Yes (Other)
  Sender: FDA-Public Use
  Company Number: FR-009507513-1606FRA008567

PATIENT
  Sex: Male

DRUGS (1)
  1. LIPTRUZET [Suspect]
     Active Substance: ATORVASTATIN CALCIUM\EZETIMIBE
     Dosage: 10/20 MG OR 10/40 MG
     Route: 048

REACTIONS (2)
  - Transient ischaemic attack [Unknown]
  - Chromatopsia [Not Recovered/Not Resolved]
